FAERS Safety Report 24720073 (Version 1)
Quarter: 2024Q4

REPORT INFORMATION
  Report Type: Spontaneous
  Country: PL (occurrence: PL)
  Receive Date: 20241211
  Receipt Date: 20241211
  Transmission Date: 20250115
  Serious: Yes (Hospitalization, Other)
  Sender: BEIGENE
  Company Number: PL-BEIGENE-BGN-2024-019842

PATIENT

DRUGS (2)
  1. BRUKINSA [Suspect]
     Active Substance: ZANUBRUTINIB
     Indication: Waldenstrom^s macroglobulinaemia
  2. BRUKINSA [Suspect]
     Active Substance: ZANUBRUTINIB

REACTIONS (5)
  - Infectious pleural effusion [Unknown]
  - Haemothorax [Unknown]
  - Sepsis [Unknown]
  - Dyspnoea [Unknown]
  - Blood immunoglobulin M increased [Unknown]
